FAERS Safety Report 10094297 (Version 1)
Quarter: 2014Q2

REPORT INFORMATION
  Report Type: Spontaneous
  Country: US (occurrence: None)
  Receive Date: 20140418
  Receipt Date: 20140418
  Transmission Date: 20141212
  Serious: Yes (Death)
  Sender: FDA-Public Use
  Company Number: 201404-US-000394

PATIENT
  Age: 20 Month
  Sex: Male
  Weight: 7.3 kg

DRUGS (1)
  1. SODIUM PHOSPHATE, DIBASIC [Suspect]
     Indication: BOWEL PREPARATION

REACTIONS (4)
  - Hyperphosphataemia [None]
  - Hypocalcaemia [None]
  - Drug administered to patient of inappropriate age [None]
  - Arrhythmia [None]
